FAERS Safety Report 8553202 (Version 2)
Quarter: 2013Q4

REPORT INFORMATION
  Report Type: Spontaneous
  Country: US (occurrence: US)
  Receive Date: 20120509
  Receipt Date: 20131119
  Transmission Date: 20140711
  Serious: Yes (Other)
  Sender: FDA-Public Use
  Company Number: US-UCBSA-056587

PATIENT
  Age: 29 Year
  Sex: Female

DRUGS (1)
  1. CIMZIA [Suspect]
     Indication: CROHN^S DISEASE
     Dosage: LOT NUMBER: 105034 EXPIRY DATE: ??/FEB/2016
     Route: 058
     Dates: start: 20120319

REACTIONS (2)
  - Cellulitis [Not Recovered/Not Resolved]
  - Inappropriate schedule of drug administration [Unknown]
